FAERS Safety Report 4300163-2 (Version None)
Quarter: 2004Q1

REPORT INFORMATION
  Report Type: 
  Country: None (occurrence: None)
  Receive Date: 20040209
  Receipt Date: 20040122
  Transmission Date: 20041129
  Serious: Yes (Death, Life-Threatening, Hospitalization, Other)
  Sender: FDA-Public Use
  Company Number: 234022

PATIENT
  Age: 64 Year
  Sex: Female
  Weight: 68 kg

DRUGS (7)
  1. NOVOSEVEN [Suspect]
     Indication: CEREBRAL HAEMORRHAGE
     Dosage: 80 UG/KG X 1 DOSE, INTRAVENOUS
     Route: 042
     Dates: start: 20031115, end: 20031115
  2. ZESTRIL [Concomitant]
  3. EBRANTIL (URAPIDIL) INJ. [Concomitant]
  4. SOLU-MEDROL (METHYLPREDNISOLONE SODIUM SUCCINATE) INJ. [Concomitant]
  5. AUGMENTIN [Concomitant]
  6. ULTIVA (REMIFENTANIL HYDROCHLORIDE) INJ. [Concomitant]
  7. ULCOGANT (SUCRALFATE) ORAL SOLUTION [Concomitant]

REACTIONS (7)
  - BRAIN COMPRESSION [None]
  - BRAIN OEDEMA [None]
  - CARDIO-RESPIRATORY ARREST [None]
  - CORONARY ARTERY ATHEROSCLEROSIS [None]
  - PULMONARY OEDEMA [None]
  - PYREXIA [None]
  - RESPIRATORY DEPRESSION [None]
